FAERS Safety Report 6264244-9 (Version None)
Quarter: 2009Q3

REPORT INFORMATION
  Report Type: 
  Country: None (occurrence: None)
  Receive Date: 20090710
  Receipt Date: 20090702
  Transmission Date: 20100115
  Serious: Yes (Hospitalization)
  Sender: FDA-Public Use
  Company Number: JP-B.I. PHARMACEUTICALS,INC./RIDGEFIELD-2009-BP-07611YA

PATIENT
  Sex: Male
  Weight: 70 kg

DRUGS (4)
  1. HARNAL (TAMSULOSIN) ORODISPERSABLE CR [Suspect]
     Indication: BENIGN PROSTATIC HYPERPLASIA
     Route: 048
     Dates: start: 20090123
  2. BLIND (SOLIFENACIN) [Suspect]
     Indication: HYPERTONIC BLADDER
     Route: 048
     Dates: start: 20090410, end: 20090702
  3. PETROLATUM SALICYLICUM [Concomitant]
     Dates: start: 20090319
  4. MAGNESIUM OXIDE [Concomitant]
     Route: 048

REACTIONS (1)
  - ABDOMINAL DISTENSION [None]
